FAERS Safety Report 7915720-1 (Version None)
Quarter: 2011Q4

REPORT INFORMATION
  Report Type: 
  Country: None (occurrence: None)
  Receive Date: 20111115
  Receipt Date: 20111107
  Transmission Date: 20120403
  Serious: Yes (Death, Hospitalization)
  Sender: FDA-Public Use
  Company Number: JP-GLAXOSMITHKLINE-B0761897A

PATIENT
  Sex: Female
  Weight: 75 kg

DRUGS (13)
  1. TYKERB [Suspect]
     Indication: BREAST CANCER
     Dosage: 1250MG PER DAY
     Route: 048
     Dates: start: 20110121, end: 20110204
  2. XELODA [Suspect]
     Dosage: 1800MG PER DAY
     Route: 048
     Dates: start: 20110121, end: 20110204
  3. VITAMEDIN [Concomitant]
     Indication: HYPOAESTHESIA
     Route: 048
     Dates: start: 20100709, end: 20110225
  4. LOXONIN [Concomitant]
     Indication: ABDOMINAL PAIN
     Route: 048
     Dates: start: 20110222, end: 20110225
  5. ALDACTONE [Concomitant]
     Indication: CARDIAC FAILURE
     Route: 048
     Dates: start: 20100702, end: 20110221
  6. UNDEPRE [Concomitant]
     Indication: DEPRESSION
     Route: 048
     Dates: start: 20000101, end: 20110225
  7. METHYCOBAL [Concomitant]
     Indication: HYPOAESTHESIA
     Route: 048
     Dates: start: 20100507, end: 20110225
  8. CHINESE MEDICINE [Concomitant]
     Indication: HYPOAESTHESIA
     Route: 048
     Dates: start: 20100507, end: 20110225
  9. LANSOPRAZOLE [Concomitant]
     Indication: ABDOMINAL PAIN UPPER
     Route: 048
     Dates: start: 20100813, end: 20110225
  10. FENTANYL CITRATE [Concomitant]
     Indication: ABDOMINAL PAIN
     Route: 062
     Dates: start: 20110216, end: 20110305
  11. FLUNITRAZEPAM [Concomitant]
     Indication: DEPRESSION
     Route: 048
     Dates: start: 20000101, end: 20110225
  12. SLOWHEIM [Concomitant]
     Indication: DEPRESSION
     Route: 048
     Dates: start: 20000101, end: 20110225
  13. FUROSEMIDE [Concomitant]
     Indication: CARDIAC FAILURE
     Route: 048
     Dates: start: 20091225, end: 20110221

REACTIONS (3)
  - VOMITING [None]
  - NAUSEA [None]
  - HEPATIC CIRRHOSIS [None]
